FAERS Safety Report 12644778 (Version 5)
Quarter: 2017Q4

REPORT INFORMATION
  Report Type: Spontaneous
  Country: US (occurrence: US)
  Receive Date: 20160811
  Receipt Date: 20171016
  Transmission Date: 20180320
  Serious: Yes (Other)
  Sender: FDA-Public Use
  Company Number: US-PFIZER INC-2016379369

PATIENT
  Age: 72 Year
  Sex: Male

DRUGS (17)
  1. BACITRACIN. [Concomitant]
     Active Substance: BACITRACIN
  2. PREVACID [Concomitant]
     Active Substance: LANSOPRAZOLE
  3. HYDROCODONE-ACETAMINOPHEN [Concomitant]
     Active Substance: ACETAMINOPHEN\HYDROCODONE
  4. LISINOPRIL. [Concomitant]
     Active Substance: LISINOPRIL
  5. NITROGLYCERINE [Concomitant]
     Active Substance: NITROGLYCERIN
  6. PROBENECID. [Concomitant]
     Active Substance: PROBENECID
  7. SENNA [Concomitant]
     Active Substance: SENNA LEAF\SENNOSIDES\SENNOSIDES A AND B
  8. HYDROCORTISONE. [Concomitant]
     Active Substance: HYDROCORTISONE
  9. ALLOPURINOL. [Concomitant]
     Active Substance: ALLOPURINOL
  10. SUTENT [Suspect]
     Active Substance: SUNITINIB MALATE
     Dosage: UNK
     Dates: start: 20151231
  11. MORPHINE SULPHATE [Concomitant]
     Active Substance: MORPHINE SULFATE
  12. DOCUSATE SODIUM. [Concomitant]
     Active Substance: DOCUSATE SODIUM
  13. HYDROCHLOROTHIAZIDE. [Concomitant]
     Active Substance: HYDROCHLOROTHIAZIDE
  14. ATORVASTATIN CALCIUM. [Concomitant]
     Active Substance: ATORVASTATIN CALCIUM
  15. SUTENT [Suspect]
     Active Substance: SUNITINIB MALATE
     Indication: RENAL CANCER
     Dosage: UNK, CYCLIC (4 WEEKS AND THEN HAVING 2 WEEKS OFF)
  16. METOPROLOL TARTRATE. [Concomitant]
     Active Substance: METOPROLOL TARTRATE
  17. WARFARIN SODIUM. [Concomitant]
     Active Substance: WARFARIN SODIUM

REACTIONS (8)
  - Lip blister [Unknown]
  - Lumbar vertebral fracture [Unknown]
  - Purpura [Unknown]
  - Rash pruritic [Unknown]
  - Nasopharyngitis [Unknown]
  - Fall [Unknown]
  - Rash [Unknown]
  - Oral mucosal blistering [Unknown]

NARRATIVE: CASE EVENT DATE: 20170107
